FAERS Safety Report 7633835-2 (Version None)
Quarter: 2011Q3

REPORT INFORMATION
  Report Type: 
  Country: None (occurrence: None)
  Receive Date: 20110718
  Receipt Date: 20110701
  Transmission Date: 20111222
  Serious: Yes (Hospitalization)
  Sender: FDA-Public Use
  Company Number: TCI2011A03844

PATIENT
  Age: 77 Year
  Sex: Male

DRUGS (8)
  1. URSO (URSODEOXYCHOLIC ACID) AMARYL(GLIMEPIRIDE) [Concomitant]
  2. RABEPRAZOLE SODIUM [Concomitant]
  3. MUCOSTA (REBAMIPIDE) [Concomitant]
  4. BASEN TABLETS 0.2 (VOGLIBOSE) [Concomitant]
  5. ACTOS [Suspect]
     Indication: DIABETES MELLITUS
     Dosage: 15 MG (15 MG, 1 D) PER ORAL, 30 MG (30 MG, 1 IN 1 D)
     Route: 048
     Dates: start: 20090101
  6. METGLUCO (METFORMIN HYDROCHLORIDE) [Concomitant]
  7. AMARYL [Concomitant]
  8. MOHRUS TAPE L (KETOPROFEN) [Concomitant]

REACTIONS (6)
  - JAUNDICE [None]
  - BILE DUCT STENOSIS [None]
  - TREATMENT NONCOMPLIANCE [None]
  - BLADDER TRANSITIONAL CELL CARCINOMA [None]
  - BLADDER CANCER STAGE III [None]
  - PANCREATITIS [None]
